FAERS Safety Report 9903767 (Version 1)
Quarter: 2014Q1

REPORT INFORMATION
  Report Type: Report from Study
  Country: US (occurrence: US)
  Receive Date: 20140218
  Receipt Date: 20140218
  Transmission Date: 20141002
  Serious: Yes (Other)
  Sender: FDA-Public Use
  Company Number: US-ROCHE-1318408

PATIENT
  Sex: Female

DRUGS (15)
  1. AVASTIN [Suspect]
     Indication: RETINAL NEOVASCULARISATION
     Route: 065
     Dates: start: 20100903
  2. AVASTIN [Suspect]
     Indication: MACULAR DEGENERATION
     Route: 065
     Dates: start: 20101008
  3. AVASTIN [Suspect]
     Route: 065
     Dates: start: 20101112
  4. AVASTIN [Suspect]
     Dosage: OD
     Route: 065
     Dates: start: 20110617
  5. AVASTIN [Suspect]
     Dosage: OS
     Route: 065
     Dates: start: 20111222
  6. TRIESENCE [Concomitant]
     Route: 065
     Dates: start: 20110113
  7. ASPIRIN [Concomitant]
     Route: 065
  8. MYDRIACYL [Concomitant]
     Route: 065
     Dates: start: 20111222
  9. NEO-SYNEPHRINE [Concomitant]
     Route: 065
     Dates: start: 20111222
  10. POLYTRIM [Concomitant]
     Dosage: INSTILL 1 DROP LEFT EYE 4 TIMES A DAY FOR 5 DAYS
     Route: 065
     Dates: start: 20111222
  11. VIGAMOX [Concomitant]
     Dosage: INSTILL 1 DROP LEFT EYE 4 TIMES A DAY FOR 5 DAYS
     Route: 065
     Dates: start: 20111222
  12. LISINOPRIL [Concomitant]
     Route: 048
     Dates: start: 20100101
  13. SPIRONOLACTONE [Concomitant]
     Route: 048
     Dates: start: 20100101
  14. CRESTOR [Concomitant]
     Route: 048
     Dates: start: 20100101
  15. METOPROLOL SUCCINATE [Concomitant]
     Route: 048
     Dates: start: 20100101

REACTIONS (11)
  - Macular oedema [Unknown]
  - Metamorphopsia [Unknown]
  - Visual impairment [Unknown]
  - Eye disorder [Unknown]
  - Subretinal fibrosis [Unknown]
  - Detachment of retinal pigment epithelium [Unknown]
  - Macular degeneration [Unknown]
  - Macular scar [Unknown]
  - Cataract [Unknown]
  - Off label use [Unknown]
  - Cataract nuclear [Unknown]
